FAERS Safety Report 13681412 (Version 1)
Quarter: 2017Q2

REPORT INFORMATION
  Report Type: Spontaneous
  Country: US (occurrence: US)
  Receive Date: 20170623
  Receipt Date: 20170623
  Transmission Date: 20170830
  Serious: Yes (Hospitalization, Other)
  Sender: FDA-Public Use
  Company Number: US-ZYDUS-015507

PATIENT
  Age: 62 Year
  Sex: Male

DRUGS (2)
  1. VANCOMYCIN [Concomitant]
     Active Substance: VANCOMYCIN
     Indication: PRODUCT USED FOR UNKNOWN INDICATION
     Route: 042
  2. ACICLOVIR [Suspect]
     Active Substance: ACYCLOVIR
     Indication: DISSEMINATED VARICELLA ZOSTER VACCINE VIRUS INFECTION
     Route: 042

REACTIONS (14)
  - Neurotoxicity [Recovered/Resolved]
  - Mental status changes [Recovered/Resolved]
  - Asterixis [Recovered/Resolved]
  - Confusional state [Recovered/Resolved]
  - Hyperreflexia [Recovered/Resolved]
  - Dysarthria [Recovered/Resolved]
  - Toxicity to various agents [Recovered/Resolved]
  - Hyporesponsive to stimuli [Recovered/Resolved]
  - Hallucination, visual [Recovered/Resolved]
  - Disorientation [Recovered/Resolved]
  - Somnolence [Recovered/Resolved]
  - Mental disorder [Recovered/Resolved]
  - Flat affect [Recovered/Resolved]
  - Hypovolaemia [Recovered/Resolved]
